FAERS Safety Report 24388850 (Version 1)
Quarter: 2024Q4

REPORT INFORMATION
  Report Type: Spontaneous
  Country: JP (occurrence: JP)
  Receive Date: 20241002
  Receipt Date: 20241002
  Transmission Date: 20250115
  Serious: Yes (Other)
  Sender: MERCK
  Company Number: JP-MSD-M2024-20872

PATIENT
  Age: 73 Year
  Sex: Male

DRUGS (3)
  1. KEYTRUDA [Suspect]
     Active Substance: PEMBROLIZUMAB
     Indication: Lung squamous cell carcinoma stage IV
     Dosage: 200 MILLIGRAM, Q3W
     Route: 041
     Dates: start: 2020
  2. CARBOPLATIN [Concomitant]
     Active Substance: CARBOPLATIN
     Indication: Lung squamous cell carcinoma stage IV
     Dosage: UNK
     Route: 042
     Dates: start: 2020, end: 2020
  3. ABRAXANE [Concomitant]
     Active Substance: PACLITAXEL
     Indication: Lung squamous cell carcinoma stage IV
     Dosage: UNK
     Route: 042
     Dates: start: 2020, end: 2020

REACTIONS (3)
  - Immune-mediated adrenal insufficiency [Recovered/Resolved]
  - Neutrophil count decreased [Recovered/Resolved]
  - Eastern Cooperative Oncology Group performance status worsened [Unknown]

NARRATIVE: CASE EVENT DATE: 20200101
